FAERS Safety Report 14038226 (Version 1)
Quarter: 2017Q4

REPORT INFORMATION
  Report Type: Spontaneous
  Country: US (occurrence: US)
  Receive Date: 20171004
  Receipt Date: 20171004
  Transmission Date: 20180321
  Serious: No
  Sender: FDA-Public Use
  Company Number: US-GALDERMA-US16006370

PATIENT
  Age: 41 Year
  Sex: Female

DRUGS (7)
  1. MIRVASO [Suspect]
     Active Substance: BRIMONIDINE TARTRATE
     Dosage: 0.33%
     Route: 061
     Dates: start: 201512, end: 201601
  2. AVEENO ULTRACALM DAY CREAM [Concomitant]
     Route: 061
  3. SUNBLOCK [Concomitant]
     Active Substance: OCTINOXATE\TITANIUM DIOXIDE
     Route: 061
  4. MIRVASO [Suspect]
     Active Substance: BRIMONIDINE TARTRATE
     Indication: ROSACEA
     Dosage: 0.33%
     Route: 061
     Dates: start: 201512, end: 201606
  5. AVEENO ULTRA CALMING SOAP [Concomitant]
     Indication: THERAPEUTIC SKIN CARE TOPICAL
     Route: 061
     Dates: start: 2013
  6. MONTELUKAST SODIUM. [Concomitant]
     Active Substance: MONTELUKAST SODIUM
     Indication: SEASONAL ALLERGY
     Route: 048
  7. FINACEA [Concomitant]
     Active Substance: AZELAIC ACID
     Indication: ROSACEA
     Route: 061
     Dates: start: 2015

REACTIONS (6)
  - Yellow skin [Recovered/Resolved]
  - Feeling hot [Recovered/Resolved]
  - Erythema [Recovered/Resolved]
  - Rosacea [Recovered/Resolved]
  - Intentional product misuse [Recovered/Resolved]
  - Intentional overdose [Recovered/Resolved]

NARRATIVE: CASE EVENT DATE: 201512
